FAERS Safety Report 12615418 (Version 4)
Quarter: 2016Q3

REPORT INFORMATION
  Report Type: Spontaneous
  Country: JP (occurrence: JP)
  Receive Date: 20160802
  Receipt Date: 20160926
  Transmission Date: 20161109
  Serious: Yes (Death, Life-Threatening, Hospitalization)
  Sender: FDA-Public Use
  Company Number: JP-ELI_LILLY_AND_COMPANY-JP201607013913

PATIENT
  Age: 80 Year
  Sex: Male
  Weight: 47.5 kg

DRUGS (5)
  1. PACLITAXEL. [Suspect]
     Active Substance: PACLITAXEL
     Indication: GASTRIC CANCER RECURRENT
     Dosage: 110 MG, OTHER
     Route: 042
     Dates: start: 20160719, end: 20160719
  2. RANITIDINE. [Concomitant]
     Active Substance: RANITIDINE
     Indication: PROPHYLAXIS OF NAUSEA AND VOMITING
     Dosage: 50 MG, OTHER
     Route: 042
     Dates: start: 20160719
  3. DEXART [Concomitant]
     Active Substance: DEXAMETHASONE SODIUM PHOSPHATE
     Indication: PROPHYLAXIS OF NAUSEA AND VOMITING
     Dosage: 6.6 MG, UNK
     Route: 042
     Dates: start: 20160719
  4. CYRAMZA [Suspect]
     Active Substance: RAMUCIRUMAB
     Indication: GASTRIC CANCER RECURRENT
     Dosage: 370 MG, OTHER
     Route: 042
     Dates: start: 20160719, end: 20160719
  5. GRANISETRON [Concomitant]
     Active Substance: GRANISETRON
     Indication: PROPHYLAXIS OF NAUSEA AND VOMITING
     Dosage: 3 MG, UNK
     Route: 042
     Dates: start: 20160719

REACTIONS (4)
  - Febrile neutropenia [Unknown]
  - Platelet count decreased [Not Recovered/Not Resolved]
  - Malaise [Not Recovered/Not Resolved]
  - Pneumonia [Fatal]

NARRATIVE: CASE EVENT DATE: 20160720
